FAERS Safety Report 8551630-7 (Version None)
Quarter: 2012Q3

REPORT INFORMATION
  Report Type: 
  Country: None (occurrence: None)
  Receive Date: 20120723
  Receipt Date: 20120723
  Transmission Date: 20120928
  Serious: Yes (Other)
  Sender: FDA-Public Use
  Company Number: None

PATIENT
  Sex: Female

DRUGS (2)
  1. LEVOTHYROXINE SODIUM [Concomitant]
  2. DIFLUCAN [Suspect]
     Indication: FUNGAL INFECTION
     Dosage: 150MG AS NEEDED- PO
     Route: 048

REACTIONS (2)
  - FEELING HOT [None]
  - LIP SWELLING [None]
